FAERS Safety Report 9077138 (Version 1)
Quarter: 2013Q1

REPORT INFORMATION
  Report Type: Spontaneous
  Country: FR (occurrence: FR)
  Receive Date: 20130130
  Receipt Date: 20130130
  Transmission Date: 20140127
  Serious: Yes (Hospitalization)
  Sender: FDA-Public Use
  Company Number: FR-AMGEN-FRASP2013006303

PATIENT
  Age: 37 Year
  Sex: Female

DRUGS (4)
  1. ENBREL [Suspect]
     Indication: RHEUMATOID ARTHRITIS
     Dosage: 50 MG, WEEKLY
     Route: 058
     Dates: start: 201011, end: 201210
  2. CELLCEPT                           /01275102/ [Suspect]
     Dosage: 250 MG, 2X/DAY
     Route: 048
     Dates: start: 200909, end: 201210
  3. CORTANCYL [Concomitant]
     Dosage: 5 MG, 1X/DAY
  4. KARDEGIC [Concomitant]
     Dosage: UNK

REACTIONS (2)
  - Ruptured cerebral aneurysm [Recovering/Resolving]
  - Staphylococcal sepsis [Recovering/Resolving]
